FAERS Safety Report 9900303 (Version 1)
Quarter: 2014Q1

REPORT INFORMATION
  Report Type: Spontaneous
  Country: US (occurrence: US)
  Receive Date: 20140216
  Receipt Date: 20140216
  Transmission Date: 20141002
  Serious: Yes (Death)
  Sender: FDA-Public Use
  Company Number: US-MERCK-1402USA005437

PATIENT
  Age: 81 Year
  Sex: Male

DRUGS (1)
  1. TEMODAR [Suspect]
     Dosage: 250 MG, UNK
     Route: 048
     Dates: start: 20140207, end: 20140209

REACTIONS (1)
  - Death [Fatal]
